FAERS Safety Report 24902681 (Version 1)
Quarter: 2025Q1

REPORT INFORMATION
  Report Type: Spontaneous
  Country: US (occurrence: US)
  Receive Date: 20250130
  Receipt Date: 20250130
  Transmission Date: 20250409
  Serious: No
  Sender: JOHNSON AND JOHNSON
  Company Number: US-JNJFOC-20241154065

PATIENT
  Age: 22 Year
  Sex: Male
  Weight: 95 kg

DRUGS (18)
  1. INFLIXIMAB\RECOMBINANT INTERLEUKIN-2 HUMAN [Suspect]
     Active Substance: ALDESLEUKIN\INFLIXIMAB
     Indication: Crohn^s disease
     Route: 041
     Dates: start: 20240401
  2. INFLIXIMAB\RECOMBINANT INTERLEUKIN-2 HUMAN [Suspect]
     Active Substance: ALDESLEUKIN\INFLIXIMAB
     Route: 041
     Dates: start: 20240501
  3. INFLIXIMAB\RECOMBINANT INTERLEUKIN-2 HUMAN [Suspect]
     Active Substance: ALDESLEUKIN\INFLIXIMAB
     Route: 041
     Dates: start: 20240515
  4. INFLIXIMAB\RECOMBINANT INTERLEUKIN-2 HUMAN [Suspect]
     Active Substance: ALDESLEUKIN\INFLIXIMAB
     Route: 041
     Dates: start: 20240625
  5. INFLIXIMAB\RECOMBINANT INTERLEUKIN-2 HUMAN [Suspect]
     Active Substance: ALDESLEUKIN\INFLIXIMAB
     Route: 041
     Dates: start: 20240810
  6. INFLIXIMAB\RECOMBINANT INTERLEUKIN-2 HUMAN [Suspect]
     Active Substance: ALDESLEUKIN\INFLIXIMAB
     Route: 041
     Dates: start: 20240824
  7. INFLIXIMAB\RECOMBINANT INTERLEUKIN-2 HUMAN [Suspect]
     Active Substance: ALDESLEUKIN\INFLIXIMAB
     Route: 041
     Dates: start: 20240829
  8. INFLIXIMAB\RECOMBINANT INTERLEUKIN-2 HUMAN [Suspect]
     Active Substance: ALDESLEUKIN\INFLIXIMAB
     Route: 041
     Dates: start: 20240905
  9. INFLIXIMAB\RECOMBINANT INTERLEUKIN-2 HUMAN [Suspect]
     Active Substance: ALDESLEUKIN\INFLIXIMAB
     Route: 041
     Dates: start: 20240908
  10. INFLIXIMAB\RECOMBINANT INTERLEUKIN-2 HUMAN [Suspect]
     Active Substance: ALDESLEUKIN\INFLIXIMAB
     Route: 041
     Dates: start: 20240914
  11. INFLIXIMAB\RECOMBINANT INTERLEUKIN-2 HUMAN [Suspect]
     Active Substance: ALDESLEUKIN\INFLIXIMAB
     Route: 041
     Dates: start: 20240921
  12. INFLIXIMAB\RECOMBINANT INTERLEUKIN-2 HUMAN [Suspect]
     Active Substance: ALDESLEUKIN\INFLIXIMAB
     Route: 041
     Dates: start: 20240929
  13. INFLIXIMAB\RECOMBINANT INTERLEUKIN-2 HUMAN [Suspect]
     Active Substance: ALDESLEUKIN\INFLIXIMAB
     Route: 041
     Dates: start: 20241006
  14. INFLIXIMAB\RECOMBINANT INTERLEUKIN-2 HUMAN [Suspect]
     Active Substance: ALDESLEUKIN\INFLIXIMAB
     Route: 041
     Dates: start: 20241013
  15. INFLIXIMAB\RECOMBINANT INTERLEUKIN-2 HUMAN [Suspect]
     Active Substance: ALDESLEUKIN\INFLIXIMAB
     Route: 041
     Dates: start: 20241019
  16. INFLIXIMAB\RECOMBINANT INTERLEUKIN-2 HUMAN [Suspect]
     Active Substance: ALDESLEUKIN\INFLIXIMAB
     Route: 041
     Dates: start: 20241031
  17. INFLIXIMAB\RECOMBINANT INTERLEUKIN-2 HUMAN [Suspect]
     Active Substance: ALDESLEUKIN\INFLIXIMAB
     Route: 041
     Dates: start: 20241109
  18. INFLIXIMAB\RECOMBINANT INTERLEUKIN-2 HUMAN [Suspect]
     Active Substance: ALDESLEUKIN\INFLIXIMAB
     Route: 041
     Dates: start: 20241116

REACTIONS (4)
  - Device use issue [Unknown]
  - Arthritis enteropathic [Unknown]
  - Off label use [Unknown]
  - Drug specific antibody present [Unknown]

NARRATIVE: CASE EVENT DATE: 20240914
